FAERS Safety Report 25936677 (Version 1)
Quarter: 2025Q4

REPORT INFORMATION
  Report Type: Spontaneous
  Country: US (occurrence: None)
  Receive Date: 20251017
  Receipt Date: 20251017
  Transmission Date: 20260118
  Serious: No
  Sender: FDA-CTU
  Company Number: None

PATIENT
  Sex: Female
  Weight: 118.84 kg

DRUGS (1)
  1. LUMASON [Suspect]
     Active Substance: SULFUR HEXAFLUORIDE
     Indication: Ultrasound scan
     Route: 042
     Dates: start: 20251017

REACTIONS (6)
  - Cough [None]
  - Blood pressure immeasurable [None]
  - Erythema [None]
  - Depressed level of consciousness [None]
  - Dysarthria [None]
  - Presyncope [None]
